FAERS Safety Report 6228218-6 (Version None)
Quarter: 2009Q2

REPORT INFORMATION
  Report Type: 
  Country: None (occurrence: None)
  Receive Date: 20090610
  Receipt Date: 20090610
  Transmission Date: 20091009
  Serious: Yes (Other)
  Sender: FDA-Public Use
  Company Number: None

PATIENT

DRUGS (1)
  1. ACTONEL [Suspect]
     Indication: OSTEOPENIA
     Dosage: 150 MG -1 PILL- MONTHLY PO
     Route: 048
     Dates: start: 20080701, end: 20090601

REACTIONS (10)
  - BLOOD PRESSURE INCREASED [None]
  - COUGH [None]
  - EYE IRRITATION [None]
  - HORDEOLUM [None]
  - INCREASED UPPER AIRWAY SECRETION [None]
  - OCULAR HYPERAEMIA [None]
  - PHARYNGEAL OEDEMA [None]
  - TOOTH EXTRACTION [None]
  - TOOTH FRACTURE [None]
  - UNEVALUABLE EVENT [None]
